FAERS Safety Report 12206466 (Version 1)
Quarter: 2016Q1

REPORT INFORMATION
  Report Type: Spontaneous
  Country: US (occurrence: US)
  Receive Date: 20160324
  Receipt Date: 20160324
  Transmission Date: 20160526
  Serious: No
  Sender: FDA-Public Use
  Company Number: US-PFIZER INC-2016139616

PATIENT
  Age: 33 Year
  Sex: Female

DRUGS (13)
  1. DIVALPROEX [Concomitant]
     Active Substance: DIVALPROEX SODIUM
     Indication: DEPRESSION
  2. DOXEPIN [Concomitant]
     Active Substance: DOXEPIN
     Indication: DEPRESSION
     Dosage: 150 MG, DAILY
     Dates: start: 2014, end: 2015
  3. GABAPENTIN. [Suspect]
     Active Substance: GABAPENTIN
     Dosage: 900 MG, UNK
     Dates: end: 2015
  4. PHENYTOIN SODIUM. [Concomitant]
     Active Substance: PHENYTOIN SODIUM
     Indication: SEIZURE
     Dosage: 100 MG, TAKE 3 IN THE MORNING
     Dates: start: 2004
  5. GABAPENTIN. [Suspect]
     Active Substance: GABAPENTIN
     Dosage: 600 MG, UNK
  6. DOXEPIN [Concomitant]
     Active Substance: DOXEPIN
     Indication: SLEEP DISORDER
  7. DIVALPROEX [Concomitant]
     Active Substance: DIVALPROEX SODIUM
     Indication: PAIN
     Dosage: 500 MG, 3X/DAY
  8. DIVALPROEX [Concomitant]
     Active Substance: DIVALPROEX SODIUM
     Indication: SEIZURE
  9. METHOTREXATE [Concomitant]
     Active Substance: METHOTREXATE
     Indication: RHEUMATOID ARTHRITIS
     Dosage: 0.25 MG, 10 PILLS EVERY MONDAY
     Dates: end: 2015
  10. ACETAMINOPHEN W/HYDROCODONE [Concomitant]
     Active Substance: ACETAMINOPHEN\HYDROCODONE
     Indication: PAIN
     Dosage: [HYDROCODONE 10MG]/[ACETAMINOPHEN 325MG] 5 PILLS, DEPENDS ON PAIN
     Dates: start: 2004
  11. GABAPENTIN. [Suspect]
     Active Substance: GABAPENTIN
     Indication: FIBROMYALGIA
     Dosage: 300 MG TABLET, EITHER 3 OR 4 TIMES A DAY
     Route: 048
  12. BACLOFEN. [Concomitant]
     Active Substance: BACLOFEN
     Indication: MUSCLE DISORDER
     Dosage: 20 MG, 4X/DAY
  13. HYDROMORPHONE [Concomitant]
     Active Substance: HYDROMORPHONE
     Indication: PAIN
     Dosage: 4 MG, AS NEEDED
     Dates: start: 2014

REACTIONS (6)
  - Condition aggravated [Unknown]
  - Drug ineffective for unapproved indication [Unknown]
  - Peripheral swelling [Unknown]
  - Pain [Unknown]
  - Peripheral swelling [Recovered/Resolved]
  - Ligament sprain [Unknown]
